FAERS Safety Report 9418294 (Version 3)
Quarter: 2014Q1

REPORT INFORMATION
  Report Type: Spontaneous
  Country: DE (occurrence: DE)
  Receive Date: 20130724
  Receipt Date: 20140311
  Transmission Date: 20141002
  Serious: Yes (Other)
  Sender: FDA-Public Use
  Company Number: DE-ROCHE-1252755

PATIENT
  Age: 38 Year
  Sex: Female
  Weight: 88 kg

DRUGS (9)
  1. AVASTIN [Suspect]
     Indication: GLIOBLASTOMA MULTIFORME
     Dosage: 15 MG/KG, RANGE FROM 1200-1400 MG
     Route: 042
     Dates: start: 20101005, end: 20121025
  2. AVASTIN [Suspect]
     Indication: OFF LABEL USE
     Dosage: 10 MG/KG, RANGE FROM 900-925 MG
     Route: 042
     Dates: start: 20130108, end: 20130509
  3. AVASTIN [Suspect]
     Route: 042
     Dates: start: 20130528, end: 20130618
  4. AVASTIN [Suspect]
     Dosage: ON 16-JAN-2014 90 MIN VIA PORT
     Route: 042
     Dates: start: 20130816
  5. AVASTIN [Suspect]
     Route: 042
     Dates: start: 20131128
  6. AVASTIN [Suspect]
     Route: 042
     Dates: start: 20131219
  7. AVASTIN [Suspect]
     Route: 042
     Dates: start: 20140116
  8. AVASTIN [Suspect]
     Route: 042
     Dates: start: 20140221
  9. ONDANSETRON [Concomitant]
     Indication: NAUSEA
     Route: 065
     Dates: start: 20101005

REACTIONS (4)
  - Proteinuria [Unknown]
  - Blood creatinine increased [Not Recovered/Not Resolved]
  - Glomerular filtration rate decreased [Not Recovered/Not Resolved]
  - Urinary tract infection [Unknown]
